FAERS Safety Report 5841870-X (Version None)
Quarter: 2008Q3

REPORT INFORMATION
  Report Type: 
  Country: None (occurrence: None)
  Receive Date: 20080812
  Receipt Date: 20080731
  Transmission Date: 20090109
  Serious: Yes (Death, Hospitalization)
  Sender: FDA-Public Use
  Company Number: US-ROCHE-573618

PATIENT
  Sex: Male

DRUGS (1)
  1. VALGANCICLOVIR HCL [Suspect]
     Route: 065
     Dates: start: 20061201, end: 20080610

REACTIONS (4)
  - CYTOMEGALOVIRUS INFECTION [None]
  - LOSS OF CONSCIOUSNESS [None]
  - PNEUMONIA [None]
  - SEPSIS [None]
